FAERS Safety Report 17983236 (Version 3)
Quarter: 2020Q4

REPORT INFORMATION
  Report Type: Spontaneous
  Country: US (occurrence: US)
  Receive Date: 20200706
  Receipt Date: 20201217
  Transmission Date: 20210113
  Serious: Yes (Death, Hospitalization)
  Sender: FDA-Public Use
  Company Number: US-JNJFOC-20200702226

PATIENT
  Age: 91 Year
  Sex: Male

DRUGS (13)
  1. KEPPRA [Concomitant]
     Active Substance: LEVETIRACETAM
  2. SIMVASTATIN. [Concomitant]
     Active Substance: SIMVASTATIN
     Indication: BLOOD CHOLESTEROL
  3. LUPRON [Concomitant]
     Active Substance: LEUPROLIDE ACETATE
  4. METOPROLOL. [Concomitant]
     Active Substance: METOPROLOL
     Indication: BLOOD PRESSURE MEASUREMENT
  5. ALLOPURINOL. [Concomitant]
     Active Substance: ALLOPURINOL
     Indication: GOUT
  6. PREDNISONE. [Concomitant]
     Active Substance: PREDNISONE
     Indication: PROSTATE CANCER
  7. FUROSEMIDE. [Concomitant]
     Active Substance: FUROSEMIDE
  8. XGEVA [Concomitant]
     Active Substance: DENOSUMAB
  9. WARFARIN [Concomitant]
     Active Substance: WARFARIN
  10. VITAMIN C [Concomitant]
     Active Substance: ASCORBIC ACID
  11. PANTOPRAZOLE [Concomitant]
     Active Substance: PANTOPRAZOLE
  12. VITAMIN D                          /00107901/ [Concomitant]
     Active Substance: ERGOCALCIFEROL
  13. ZYTIGA [Suspect]
     Active Substance: ABIRATERONE ACETATE
     Indication: PROSTATE CANCER
     Route: 048

REACTIONS (3)
  - Extremity necrosis [Unknown]
  - Localised infection [Unknown]
  - Cardiac failure acute [Fatal]

NARRATIVE: CASE EVENT DATE: 20200519
